FAERS Safety Report 8464079-2 (Version None)
Quarter: 2012Q2

REPORT INFORMATION
  Report Type: 
  Country: None (occurrence: None)
  Receive Date: 20120625
  Receipt Date: 20120612
  Transmission Date: 20120825
  Serious: Yes (Other)
  Sender: FDA-Public Use
  Company Number: DE-MYLANLABS-2012S1011840

PATIENT
  Age: 54 Year
  Sex: Male
  Weight: 72 kg

DRUGS (1)
  1. PAROXETINE HCL [Suspect]
     Indication: INSOMNIA
     Dosage: DAILY DOSE: 30 MG MILLGRAM(S) EVERY DAYS
     Route: 048

REACTIONS (5)
  - FEELING COLD [None]
  - ANXIETY [None]
  - TREMOR [None]
  - HYPERHIDROSIS [None]
  - RESTLESSNESS [None]
